FAERS Safety Report 8156666-6 (Version None)
Quarter: 2012Q1

REPORT INFORMATION
  Report Type: 
  Country: None (occurrence: None)
  Receive Date: 20120222
  Receipt Date: 20120213
  Transmission Date: 20120608
  Serious: Yes (Other)
  Sender: FDA-Public Use
  Company Number: US-BAYER-2011-036565

PATIENT
  Age: 31 Year
  Sex: Female
  Weight: 86.168 kg

DRUGS (4)
  1. YASMIN [Suspect]
     Indication: CONTRACEPTION
     Dosage: UNK
     Route: 048
     Dates: start: 20070701, end: 20080901
  2. DROSPIRENONE AND ETHINYL ESTRADIOL [Suspect]
     Indication: CONTRACEPTION
     Dosage: UNK
     Route: 048
     Dates: start: 20080901, end: 20100701
  3. OMEPRAZOLE [Concomitant]
     Dosage: 20 MG, UNK
     Route: 048
     Dates: start: 20090107
  4. MULTI-VITAMIN [Concomitant]
     Indication: MEDICAL DIET
     Dosage: UNK UNK, QD
     Route: 048
     Dates: start: 20080101

REACTIONS (6)
  - EMOTIONAL DISTRESS [None]
  - CHOLELITHIASIS [None]
  - ABDOMINAL PAIN [None]
  - PAIN [None]
  - INJURY [None]
  - ANXIETY [None]
